FAERS Safety Report 8304330-2 (Version None)
Quarter: 2012Q2

REPORT INFORMATION
  Report Type: 
  Country: None (occurrence: None)
  Receive Date: 20120423
  Receipt Date: 20120423
  Transmission Date: 20120825
  Serious: Yes (Life-Threatening, Other)
  Sender: FDA-Public Use
  Company Number: None

PATIENT
  Age: 45 Year
  Sex: Male
  Weight: 99.79 kg

DRUGS (1)
  1. GEODON [Suspect]

REACTIONS (15)
  - VERTIGO [None]
  - ANAPHYLACTIC SHOCK [None]
  - FORMICATION [None]
  - HYPERTENSION [None]
  - FATIGUE [None]
  - DRUG WITHDRAWAL SYNDROME [None]
  - PYREXIA [None]
  - DYSGEUSIA [None]
  - HEADACHE [None]
  - ANXIETY [None]
  - HYPOAESTHESIA [None]
  - PAROSMIA [None]
  - TINNITUS [None]
  - INFLUENZA LIKE ILLNESS [None]
  - VISUAL FIELD DEFECT [None]
